FAERS Safety Report 22369768 (Version 1)
Quarter: 2023Q2

REPORT INFORMATION
  Report Type: Spontaneous
  Country: FR (occurrence: FR)
  Receive Date: 20230526
  Receipt Date: 20230526
  Transmission Date: 20230722
  Serious: Yes (Hospitalization)
  Sender: FDA-Public Use
  Company Number: FR-ORGANON-1809FRA001075

PATIENT
  Age: 64 Year
  Sex: Male

DRUGS (14)
  1. EZETIMIBE [Suspect]
     Active Substance: EZETIMIBE
     Indication: Dyslipidaemia
     Dosage: 10 MG, QD
     Route: 048
     Dates: start: 2003
  2. ALLOPURINOL [Suspect]
     Active Substance: ALLOPURINOL
     Indication: Product used for unknown indication
     Dosage: 200 MG, QD
     Route: 048
  3. TAHOR [Suspect]
     Active Substance: ATORVASTATIN CALCIUM
     Indication: Dyslipidaemia
     Dosage: 40 MG, QD
     Route: 048
     Dates: start: 2016
  4. RAMIPRIL [Suspect]
     Active Substance: RAMIPRIL
     Indication: Ischaemic cardiomyopathy
     Dosage: 2.5 MG, QD
     Route: 048
  5. OMEPRAZOLE [Suspect]
     Active Substance: OMEPRAZOLE
     Indication: Product used for unknown indication
     Dosage: 20 MG, QD
     Route: 048
  6. RAPAMUNE [Suspect]
     Active Substance: SIROLIMUS
     Indication: Renal transplant
     Dosage: 1 MG, QD
     Route: 048
     Dates: start: 2005
  7. CELLCEPT [Suspect]
     Active Substance: MYCOPHENOLATE MOFETIL
     Indication: Renal transplant
     Dosage: 2000 MG, QD
     Route: 048
     Dates: start: 2005
  8. FLUINDIONE [Suspect]
     Active Substance: FLUINDIONE
     Indication: Atrial fibrillation
     Dosage: 0.5 OF A TABLET AND 3/4 OF A TABLET ALTERNATELY
     Route: 048
     Dates: start: 2008
  9. FLUINDIONE [Suspect]
     Active Substance: FLUINDIONE
     Dosage: 0.5 OF A TABLET AND 3/4 OF A TABLET ALTERNATELY
     Route: 048
     Dates: start: 2011
  10. KARDEGIC [Suspect]
     Active Substance: ASPIRIN DL-LYSINE
     Indication: Myocardial ischaemia
     Dosage: 75 MG, QD (FORMULATION: POWDER FOR ORAL SOLUTION IN SINGLE-DOSE SACHET)
     Route: 048
     Dates: start: 2011
  11. CINACALCET HYDROCHLORIDE [Suspect]
     Active Substance: CINACALCET HYDROCHLORIDE
     Indication: Hyperparathyroidism
     Dosage: 60 MG, QD
     Route: 048
     Dates: start: 2008
  12. BISOPROLOL [Suspect]
     Active Substance: BISOPROLOL
     Indication: Ischaemic cardiomyopathy
     Dosage: 5 MG, QD (FORMULATION: SCORED FILM-COATED TABLET)
     Route: 048
  13. SODIUM BICARBONATE [Concomitant]
     Active Substance: SODIUM BICARBONATE
     Indication: Product used for unknown indication
     Dosage: UNK
     Route: 065
  14. CHOLECALCIFEROL [Concomitant]
     Active Substance: CHOLECALCIFEROL
     Indication: Product used for unknown indication
     Dosage: UNK
     Route: 065

REACTIONS (1)
  - Interstitial lung disease [Not Recovered/Not Resolved]

NARRATIVE: CASE EVENT DATE: 20180501
